FAERS Safety Report 18467347 (Version 1)
Quarter: 2020Q4

REPORT INFORMATION
  Report Type: Spontaneous
  Country: US (occurrence: US)
  Receive Date: 20201105
  Receipt Date: 20201105
  Transmission Date: 20210114
  Serious: Yes (Other)
  Sender: FDA-Public Use
  Company Number: US-SUN PHARMACEUTICAL INDUSTRIES LTD-2020R1-266368

PATIENT
  Age: 51 Year
  Sex: Female

DRUGS (1)
  1. IPRATROPIUM/SALBUTAMOL [Suspect]
     Active Substance: ALBUTEROL\IPRATROPIUM BROMIDE
     Indication: CHRONIC OBSTRUCTIVE PULMONARY DISEASE
     Dosage: UNK

REACTIONS (1)
  - Pupils unequal [Recovered/Resolved]
